FAERS Safety Report 21430002 (Version 1)
Quarter: 2022Q4

REPORT INFORMATION
  Report Type: Spontaneous
  Country: US (occurrence: US)
  Receive Date: 20221009
  Receipt Date: 20221009
  Transmission Date: 20230113
  Serious: Yes (Other)
  Sender: FDA-Public Use
  Company Number: US-PURDUE-USA-2020-0230096

PATIENT
  Sex: Female

DRUGS (5)
  1. HYDROCODONE BITARTRATE AND ACETAMINOPHEN [Suspect]
     Active Substance: ACETAMINOPHEN\HYDROCODONE BITARTRATE
     Indication: Nephrolithiasis
     Dosage: UNK
     Route: 048
  2. ACETAMINOPHEN\OXYCODONE HYDROCHLORIDE [Suspect]
     Active Substance: ACETAMINOPHEN\OXYCODONE HYDROCHLORIDE
     Indication: Nephrolithiasis
     Dosage: UNK
     Route: 048
  3. MORPHINE SULFATE [Suspect]
     Active Substance: MORPHINE SULFATE
     Indication: Nephrolithiasis
     Dosage: UNK
     Route: 065
     Dates: start: 2007
  4. TORADOL [Suspect]
     Active Substance: KETOROLAC TROMETHAMINE
     Indication: Nephrolithiasis
     Dosage: UNK
     Route: 065
     Dates: start: 2007
  5. DEMEROL [Suspect]
     Active Substance: MEPERIDINE HYDROCHLORIDE
     Indication: Nephrolithiasis
     Dosage: UNK
     Route: 065
     Dates: start: 2007

REACTIONS (2)
  - Drug dependence [Unknown]
  - Insomnia [Unknown]

NARRATIVE: CASE EVENT DATE: 20140101
